FAERS Safety Report 5271010-X (Version None)
Quarter: 2007Q1

REPORT INFORMATION
  Report Type: 
  Country: None (occurrence: None)
  Receive Date: 20070321
  Receipt Date: 20070306
  Transmission Date: 20070707
  Serious: Yes (Hospitalization, Other)
  Sender: FDA-Public Use
  Company Number: JP-ELI_LILLY_AND_COMPANY-JP200703001284

PATIENT
  Age: 65 Year
  Sex: Male
  Weight: 50 kg

DRUGS (14)
  1. PEMETREXED [Suspect]
     Indication: PLEURAL MESOTHELIOMA MALIGNANT
  2. CISPLATIN [Suspect]
     Indication: PLEURAL MESOTHELIOMA MALIGNANT
     Dosage: 110 MG, OTHER
     Route: 042
     Dates: start: 20070208, end: 20070208
  3. MORPHINE [Concomitant]
     Indication: CANCER PAIN
     Dosage: 60 MG, DAILY (1/D)
     Route: 048
     Dates: start: 20070110
  4. PANVITAN [Concomitant]
     Indication: PROPHYLAXIS
     Dosage: 0.5 MG, DAILY (1/D)
     Route: 048
     Dates: start: 20070201
  5. HYDROXOCOBALAMIN ACETATE [Concomitant]
     Indication: PROPHYLAXIS
     Dosage: 1 MG, DAILY (1/D)
     Route: 030
     Dates: start: 20070201, end: 20070201
  6. DECADRON /NET/ [Concomitant]
     Indication: PROPHYLAXIS
     Dosage: 8 MG, DAILY (1/D)
     Route: 042
     Dates: start: 20070111
  7. MUCOSTA [Concomitant]
     Dosage: 300 MG, DAILY (1/D)
     Route: 048
  8. RENIVACE [Concomitant]
     Dosage: 5 MG, DAILY (1/D)
     Route: 048
  9. PARIET [Concomitant]
     Dosage: 10 MG, DAILY (1/D)
     Route: 048
  10. TRYPTANOL [Concomitant]
     Dosage: 25 MG, DAILY (1/D)
     Route: 048
  11. LENDORMIN [Concomitant]
     Dosage: 0.25 MG, DAILY (1/D)
     Route: 048
  12. LOXONIN [Concomitant]
     Indication: CANCER PAIN
     Dosage: UNK, UNKNOWN
     Route: 048
  13. DOGMATYL [Concomitant]
     Dosage: 150 MG, DAILY (1/D)
     Route: 048
     Dates: start: 20070219, end: 20070225
  14. AMLODIN [Concomitant]
     Dosage: 5 MG, DAILY (1/D)
     Route: 048

REACTIONS (2)
  - HAEMOGLOBIN DECREASED [None]
  - INTERSTITIAL LUNG DISEASE [None]
